FAERS Safety Report 10951775 (Version 1)
Quarter: 2015Q1

REPORT INFORMATION
  Report Type: Spontaneous
  Country: US (occurrence: US)
  Receive Date: 20150325
  Receipt Date: 20150325
  Transmission Date: 20150721
  Serious: No
  Sender: FDA-Public Use
  Company Number: US-ASTRAZENECA-2015SE24479

PATIENT
  Sex: Male

DRUGS (6)
  1. ATORVASTATIN [Concomitant]
     Active Substance: ATORVASTATIN
  2. GLIPIZIDE. [Concomitant]
     Active Substance: GLIPIZIDE
  3. AMLODIPINE [Concomitant]
     Active Substance: AMLODIPINE BESYLATE
  4. DIOVAN [Concomitant]
     Active Substance: VALSARTAN
  5. ALPRAZOLAM. [Concomitant]
     Active Substance: ALPRAZOLAM
  6. BYETTA [Suspect]
     Active Substance: EXENATIDE
     Indication: TYPE 2 DIABETES MELLITUS
     Route: 058
     Dates: start: 20150311

REACTIONS (4)
  - Nervousness [Unknown]
  - Nasopharyngitis [Unknown]
  - Blood glucose fluctuation [Unknown]
  - Feeling jittery [Unknown]
